FAERS Safety Report 21999669 (Version 1)
Quarter: 2023Q1

REPORT INFORMATION
  Report Type: Spontaneous
  Country: HR (occurrence: HR)
  Receive Date: 20230216
  Receipt Date: 20230216
  Transmission Date: 20230418
  Serious: Yes (Other)
  Sender: FDA-Public Use
  Company Number: None

PATIENT
  Age: 15 Year
  Sex: Female

DRUGS (2)
  1. ZOLOFT [Suspect]
     Active Substance: SERTRALINE HYDROCHLORIDE
     Indication: Product used for unknown indication
     Dosage: HANDFUL UNKNOWN
     Route: 048
     Dates: start: 20221205, end: 20221205
  2. ARIPIPRAZOLE [Suspect]
     Active Substance: ARIPIPRAZOLE
     Indication: Product used for unknown indication
     Dosage: HANDFUL UNKNOWN
     Route: 048
     Dates: start: 20221205, end: 20221205

REACTIONS (6)
  - Epilepsy [Unknown]
  - Acidosis [Unknown]
  - Tachycardia [Unknown]
  - Seizure [Unknown]
  - Suicide attempt [Unknown]
  - Intentional overdose [Unknown]

NARRATIVE: CASE EVENT DATE: 20221205
